FAERS Safety Report 24921722 (Version 1)
Quarter: 2025Q1

REPORT INFORMATION
  Report Type: Spontaneous
  Country: US (occurrence: None)
  Receive Date: 20250203
  Receipt Date: 20250203
  Transmission Date: 20250408
  Serious: Yes (Other)
  Sender: FDA-CTU
  Company Number: None

PATIENT
  Sex: Male

DRUGS (11)
  1. TALTZ [Suspect]
     Active Substance: IXEKIZUMAB
     Indication: Psoriasis
     Dosage: FREQUENCY : MONTHLY;?
     Route: 058
     Dates: start: 20241112
  2. ALPRAZOLAM TAB 0.25MG [Concomitant]
  3. AMIODARONE [Concomitant]
     Active Substance: AMIODARONE
  4. ATORVASTATIN TAB 20MG [Concomitant]
  5. ATORVASTATIN [Concomitant]
     Active Substance: ATORVASTATIN
  6. AZELASTINE SPR 0.1% [Concomitant]
  7. BETAMETH DIP CRE 0.05% [Concomitant]
  8. CLOPIDOGREL TAB 75MG [Concomitant]
  9. DOXAZOSIN TAB4MG [Concomitant]
  10. ELIQUIS TAB SMG [Concomitant]
  11. FUROSEMIDE [Concomitant]
     Active Substance: FUROSEMIDE

REACTIONS (1)
  - Cardiac operation [None]
